FAERS Safety Report 15535965 (Version 2)
Quarter: 2018Q4

REPORT INFORMATION
  Report Type: Report from Study
  Country: CN (occurrence: CN)
  Receive Date: 20181022
  Receipt Date: 20181024
  Transmission Date: 20190205
  Serious: No
  Sender: FDA-Public Use
  Company Number: CN-IPSEN BIOPHARMACEUTICALS, INC.-2018-15793

PATIENT
  Age: 69 Year
  Sex: Male
  Weight: 69 kg

DRUGS (2)
  1. SOMATULINE 40MG [Suspect]
     Active Substance: LANREOTIDE ACETATE
     Route: 030
     Dates: start: 20180920
  2. SOMATULINE 40MG [Suspect]
     Active Substance: LANREOTIDE ACETATE
     Indication: NEUROENDOCRINE TUMOUR
     Route: 030
     Dates: start: 20180906

REACTIONS (4)
  - Underdose [Unknown]
  - Skin swelling [Recovering/Resolving]
  - Erythema [Recovering/Resolving]
  - Skin exfoliation [Recovering/Resolving]

NARRATIVE: CASE EVENT DATE: 20180906
